FAERS Safety Report 4611144-3 (Version None)
Quarter: 2005Q1

REPORT INFORMATION
  Report Type: 
  Country: None (occurrence: None)
  Receive Date: 20050317
  Receipt Date: 20050307
  Transmission Date: 20050727
  Serious: Yes (Death)
  Sender: FDA-Public Use
  Company Number: US-JNJFOC-20050206507

PATIENT
  Age: 52 Year
  Sex: Female
  Weight: 73.48 kg

DRUGS (3)
  1. DURAGESIC-100 [Suspect]
     Indication: DRUG USE FOR UNKNOWN INDICATION
     Route: 062
  2. VENLAFAXINE HCL [Concomitant]
  3. GABAPENTIN [Concomitant]

REACTIONS (5)
  - ACCIDENT [None]
  - DRUG TOXICITY [None]
  - ERYTHEMA [None]
  - PULMONARY CONGESTION [None]
  - SCAR [None]
